FAERS Safety Report 9522753 (Version 1)
Quarter: 2013Q1

REPORT INFORMATION
  Report Type: Spontaneous
  Country: US (occurrence: None)
  Receive Date: 20130305
  Receipt Date: 20130305
  Transmission Date: 20140127
  Serious: Yes (Hospitalization)
  Sender: FDA-Public Use
  Company Number: 163-21880-12080372

PATIENT
  Age: 76 Year
  Sex: Male

DRUGS (8)
  1. REVLIMID (LENALIDOMIDE) (CAPSULES) [Suspect]
     Indication: PLASMA CELL MYELOMA
     Dosage: 15 MG, 1 IN 1 D, PO
     Route: 048
     Dates: start: 201010
  2. PRBC (BLOOD CELLS, PACKED HUMAN) (UNKNOWN) [Concomitant]
  3. RESTORIL (TEMAZEPAM) (UNKNOWN) [Concomitant]
  4. GABAPENTIN (GABAPENTIN) (UNKNOWN) (GABAPENTIN) [Concomitant]
  5. MVI (MVI) (UNKNOWN) [Concomitant]
  6. VARDENAFIL (VARDENAFIL) (UNKNOWN) [Concomitant]
  7. MSO4 (MORPHINE SULFATE) (UNKNOWN) [Concomitant]
  8. WARFARIN (WARFARIN) (UNKNOWN) [Concomitant]

REACTIONS (1)
  - Staphylococcal infection [None]
